FAERS Safety Report 4401219-6 (Version None)
Quarter: 2004Q3

REPORT INFORMATION
  Report Type: 
  Country: None (occurrence: None)
  Receive Date: 20040907
  Receipt Date: 20040105
  Transmission Date: 20050211
  Serious: No
  Sender: FDA-Public Use
  Company Number: US-BRISTOL-MYERS SQUIBB COMPANY-12468849

PATIENT
  Age: 83 Year
  Sex: Female
  Weight: 63 kg

DRUGS (4)
  1. COUMADIN [Suspect]
     Indication: ATRIAL FIBRILLATION
     Route: 048
     Dates: start: 20031101
  2. PEPCID [Concomitant]
     Indication: GASTROOESOPHAGEAL REFLUX DISEASE
  3. HYDROCHLOROTHIAZIDE [Concomitant]
  4. VITAMIN [Concomitant]

REACTIONS (1)
  - WHEEZING [None]
